FAERS Safety Report 8576320 (Version 2)
Quarter: 2014Q1

REPORT INFORMATION
  Report Type: Spontaneous
  Country: US (occurrence: None)
  Receive Date: 20120323
  Receipt Date: 20140306
  Transmission Date: 20141002
  Serious: Yes (Other)
  Sender: FDA-Public Use
  Company Number: 163-21880-11013011

PATIENT
  Age: 69 Year
  Sex: Female

DRUGS (6)
  1. REVLIMID [Suspect]
     Indication: MYELODYSPLASTIC SYNDROME
     Dosage: 10 MG, 21 IN 28 D, PO
     Route: 048
     Dates: start: 20101101
  2. DICYCLOMINE(CAPSULES) [Concomitant]
  3. OMEPRAZOLE DR (CAPSULES) [Concomitant]
  4. POTASSIUM CL ER(TABLETS) [Concomitant]
  5. HYDROZYZINE HCL (HYDROXYZINE HYDROCHLORIDE)(TABLETS) [Concomitant]
  6. SERTRALINE HCL (SERTRALINE HYDROCHLORIDE )(TABLETS) [Concomitant]

REACTIONS (3)
  - Swollen tongue [None]
  - Rash [None]
  - Rash pruritic [None]
